FAERS Safety Report 25889506 (Version 1)
Quarter: 2025Q4

REPORT INFORMATION
  Report Type: Spontaneous
  Country: GB (occurrence: GB)
  Receive Date: 20251007
  Receipt Date: 20251007
  Transmission Date: 20260117
  Serious: Yes (Other)
  Sender: MYLAN
  Company Number: GB-MYLANLABS-2025M1084940

PATIENT
  Sex: Male

DRUGS (1)
  1. CLOZARIL [Suspect]
     Active Substance: CLOZAPINE
     Indication: Schizophrenia
     Dosage: UNK (DOUBLE DOSE)
     Dates: start: 20010701, end: 20250925

REACTIONS (3)
  - Vascular dementia [Unknown]
  - Electrocardiogram QT prolonged [Unknown]
  - Incorrect dose administered [Unknown]
